FAERS Safety Report 6349081-9 (Version None)
Quarter: 2009Q3

REPORT INFORMATION
  Report Type: 
  Country: None (occurrence: None)
  Receive Date: 20090911
  Receipt Date: 20090909
  Transmission Date: 20100115
  Serious: Yes (Other)
  Sender: FDA-Public Use
  Company Number: US-JNJFOC-20090900510

PATIENT
  Sex: Male

DRUGS (8)
  1. RISPERIDONE [Suspect]
     Route: 048
     Dates: start: 20090806, end: 20090828
  2. RISPERIDONE [Suspect]
     Route: 048
     Dates: start: 20090806, end: 20090828
  3. RISPERIDONE [Suspect]
     Indication: POST-TRAUMATIC STRESS DISORDER
     Route: 048
     Dates: start: 20090806, end: 20090828
  4. SERTRALINE HCL [Concomitant]
  5. OXYBUTYNIN [Concomitant]
  6. DOXAZOSIN [Concomitant]
  7. FINASTERIDE [Concomitant]
  8. ETODOLAC [Concomitant]

REACTIONS (1)
  - SUICIDAL IDEATION [None]
